FAERS Safety Report 12840512 (Version 3)
Quarter: 2016Q4

REPORT INFORMATION
  Report Type: Spontaneous
  Country: US (occurrence: US)
  Receive Date: 20161012
  Receipt Date: 20161111
  Transmission Date: 20170207
  Serious: No
  Sender: FDA-Public Use
  Company Number: US-SHIRE-US201613355

PATIENT
  Sex: Female

DRUGS (1)
  1. XIIDRA [Suspect]
     Active Substance: LIFITEGRAST
     Indication: DRY EYE
     Dosage: 1 GTT, 2X/DAY:BID (BOTH EYES)
     Route: 047

REACTIONS (7)
  - Eye discharge [Unknown]
  - Overdose [Not Recovered/Not Resolved]
  - Eye pain [Unknown]
  - Vision blurred [Unknown]
  - Drug effect incomplete [Unknown]
  - Dysgeusia [Unknown]
  - Product quality issue [Unknown]
